FAERS Safety Report 5925269-3 (Version None)
Quarter: 2008Q4

REPORT INFORMATION
  Report Type: 
  Country: None (occurrence: None)
  Receive Date: 20081021
  Receipt Date: 20081013
  Transmission Date: 20090506
  Serious: Yes (Other)
  Sender: FDA-Public Use
  Company Number: BR-ABBOTT-08P-020-0481786-00

PATIENT
  Age: 13 Year
  Sex: Male

DRUGS (8)
  1. ISOFLURANE [Suspect]
     Indication: ANAESTHESIA
  2. ISOFLURANE [Suspect]
  3. ISOFLURANE [Suspect]
  4. FENTANYL CITRATE [Concomitant]
     Indication: INDUCTION OF ANAESTHESIA
  5. MIDAZOLAM HCL [Concomitant]
     Indication: INDUCTION OF ANAESTHESIA
  6. PROPOFOL [Concomitant]
     Indication: INDUCTION OF ANAESTHESIA
  7. ATRACURIUM BESYLATE [Concomitant]
     Indication: INDUCTION OF ANAESTHESIA
  8. OXYGEN [Concomitant]
     Indication: ANAESTHESIA

REACTIONS (1)
  - HAEMODYNAMIC INSTABILITY [None]
